FAERS Safety Report 10028473 (Version 1)
Quarter: 2014Q1

REPORT INFORMATION
  Report Type: Spontaneous
  Country: JP (occurrence: JP)
  Receive Date: 20140321
  Receipt Date: 20140321
  Transmission Date: 20141002
  Serious: Yes (Other)
  Sender: FDA-Public Use
  Company Number: JP-ALLERGAN-1405087US

PATIENT
  Age: 12 Year
  Sex: Male

DRUGS (1)
  1. BOTOX [Suspect]
     Indication: MUSCLE SPASMS
     Dosage: 360 UNITS, QD
     Route: 030
     Dates: start: 20140226, end: 20140226

REACTIONS (2)
  - Hyperthermia [Recovered/Resolved]
  - Off label use [Unknown]
